FAERS Safety Report 9077314 (Version 1)
Quarter: 2013Q1

REPORT INFORMATION
  Report Type: Spontaneous
  Country: US (occurrence: US)
  Receive Date: 20130130
  Receipt Date: 20130130
  Transmission Date: 20140127
  Serious: Yes (Death, Other)
  Sender: FDA-Public Use
  Company Number: US-JNJFOC-20130115600

PATIENT
  Age: 56 Year
  Sex: Female

DRUGS (2)
  1. DOXORUBICIN [Suspect]
     Indication: UTERINE CANCER
     Dosage: A CUMULATIVE DOSE OF 3,924 MG, 47 CYCLES IN TOTAL
     Route: 042
  2. RADIOTHERAPY [Suspect]
     Indication: UTERINE CANCER
     Route: 065

REACTIONS (5)
  - Death [Fatal]
  - Squamous cell carcinoma of the oral cavity [Unknown]
  - Metastases to central nervous system [Unknown]
  - Off label use [Unknown]
  - Mucosal inflammation [Unknown]
